FAERS Safety Report 8859006 (Version 1)
Quarter: 2012Q4

REPORT INFORMATION
  Report Type: 
  Country: US (occurrence: US)
  Receive Date: 20121024
  Receipt Date: 20121024
  Transmission Date: 20130627
  Serious: Yes (Hospitalization)
  Sender: FDA-Public Use
  Company Number: PHEH2012US020678

PATIENT
  Sex: Female
  Weight: 69.85 kg

DRUGS (2)
  1. TEKTURNA [Suspect]
     Dosage: 150mg once daily
     Route: 048
  2. LETROZOLE [Concomitant]
     Dosage: 5mg once daily

REACTIONS (2)
  - Breast cancer [Unknown]
  - Diabetes mellitus [Unknown]
